FAERS Safety Report 6765065-0 (Version None)
Quarter: 2010Q2

REPORT INFORMATION
  Report Type: 
  Country: None (occurrence: None)
  Receive Date: 20100609
  Receipt Date: 20100609
  Transmission Date: 20101027
  Serious: Yes (Hospitalization)
  Sender: FDA-Public Use
  Company Number: None

PATIENT
  Age: 54 Year
  Sex: Female

DRUGS (4)
  1. JANUVIA [Suspect]
     Indication: DIABETES MELLITUS
     Dosage: TAKE 1 TABLET DAILY PATIENT STATES ON MED FROM TIME INTRODUCED TO MARKET
  2. LYRICA [Concomitant]
  3. GLIPIZIDE [Concomitant]
  4. METFORMIN [Concomitant]

REACTIONS (1)
  - PANCREATITIS [None]
